FAERS Safety Report 24162117 (Version 1)
Quarter: 2024Q3

REPORT INFORMATION
  Report Type: Spontaneous
  Country: US (occurrence: None)
  Receive Date: 20240731
  Receipt Date: 20240731
  Transmission Date: 20241016
  Serious: Yes (Hospitalization)
  Sender: Public
  Company Number: None

PATIENT
  Age: 70 Year
  Sex: Female
  Weight: 84.15 kg

DRUGS (1)
  1. PROLIA [Suspect]
     Active Substance: DENOSUMAB
     Indication: Osteopenia
     Dosage: OTHER FREQUENCY : ONCE EVERY 6 MONTH;?
     Route: 058
     Dates: start: 20240715, end: 20240730

REACTIONS (2)
  - Blood calcium decreased [None]
  - Myocardial ischaemia [None]

NARRATIVE: CASE EVENT DATE: 20240730
